FAERS Safety Report 10236127 (Version 2)
Quarter: 2014Q2

REPORT INFORMATION
  Report Type: Spontaneous
  Country: DE (occurrence: DE)
  Receive Date: 20140613
  Receipt Date: 20140613
  Transmission Date: 20141212
  Serious: Yes (Hospitalization, Other)
  Sender: FDA-Public Use
  Company Number: DE-JNJFOC-20140411590

PATIENT
  Sex: Male
  Weight: 145 kg

DRUGS (3)
  1. HALDOL [Suspect]
     Indication: SCHIZOPHRENIA, PARANOID TYPE
     Route: 048
     Dates: start: 200804
  2. DIPIPERON [Concomitant]
     Indication: RESTLESSNESS
     Route: 048
     Dates: start: 201201
  3. AKINETON [Concomitant]
     Indication: EXTRAPYRAMIDAL DISORDER
     Route: 048
     Dates: start: 201201

REACTIONS (1)
  - Drug level increased [Unknown]
